FAERS Safety Report 5873839-3 (Version None)
Quarter: 2008Q3

REPORT INFORMATION
  Report Type: 
  Country: None (occurrence: None)
  Receive Date: 20080903
  Receipt Date: 20080903
  Transmission Date: 20090109
  Serious: Yes (Other)
  Sender: FDA-Public Use
  Company Number: None

PATIENT
  Age: 67 Year
  Sex: Female
  Weight: 52.1637 kg

DRUGS (1)
  1. ACTONEL [Suspect]
     Indication: RESORPTION BONE INCREASED
     Dosage: 35 MG. ONCE A WEEK

REACTIONS (4)
  - GASTRIC DISORDER [None]
  - JAW DISORDER [None]
  - OESOPHAGEAL DISORDER [None]
  - OROPHARYNGEAL DISCOMFORT [None]
